FAERS Safety Report 5045745-8 (Version None)
Quarter: 2006Q2

REPORT INFORMATION
  Report Type: 
  Country: None (occurrence: None)
  Receive Date: 20060601
  Receipt Date: 20060426
  Transmission Date: 20061013
  Serious: No
  Sender: FDA-Public Use
  Company Number: 2006-BP-04177BP

PATIENT
  Age: 72 Year
  Sex: Female

DRUGS (7)
  1. SPIRIVA [Suspect]
     Indication: CHRONIC OBSTRUCTIVE PULMONARY DISEASE
     Dosage: 18 MCG (18 MCG,1 IN 1 D),IH
     Dates: start: 20050501
  2. SPIRIVA [Suspect]
     Indication: EMPHYSEMA
     Dosage: 18 MCG (18 MCG,1 IN 1 D),IH
     Dates: start: 20050501
  3. SPIRIVA [Suspect]
  4. OXYGEN (OXYGEN) [Concomitant]
  5. ADVAIR (SERETIDE /01420901/) [Concomitant]
  6. ALBUTEROL SPIROS [Concomitant]
  7. PHOSOMEX [Concomitant]

REACTIONS (2)
  - DRY MOUTH [None]
  - NASAL CONGESTION [None]
